FAERS Safety Report 9562131 (Version 3)
Quarter: 2013Q4

REPORT INFORMATION
  Report Type: Spontaneous
  Country: US (occurrence: US)
  Receive Date: 20130927
  Receipt Date: 20131024
  Transmission Date: 20140711
  Serious: Yes (Other)
  Sender: FDA-Public Use
  Company Number: US-UCBSA-098091

PATIENT
  Age: 18 Year
  Sex: Female

DRUGS (3)
  1. CIMZIA [Suspect]
     Indication: CROHN^S DISEASE
     Route: 058
     Dates: start: 20130117, end: 2013
  2. CIMZIA [Suspect]
     Indication: CROHN^S DISEASE
     Route: 058
     Dates: start: 20130802, end: 2013
  3. 6MP [Concomitant]

REACTIONS (2)
  - Staphylococcal infection [Recovered/Resolved]
  - Inappropriate schedule of drug administration [Unknown]
